FAERS Safety Report 14652263 (Version 1)
Quarter: 2018Q1

REPORT INFORMATION
  Report Type: Spontaneous
  Country: US (occurrence: US)
  Receive Date: 20180316
  Receipt Date: 20180316
  Transmission Date: 20180509
  Serious: Yes (Hospitalization)
  Sender: FDA-Public Use
  Company Number: None

PATIENT
  Age: 18 Year
  Sex: Female
  Weight: 89.3 kg

DRUGS (1)
  1. KYMRIAH [Suspect]
     Active Substance: TISAGENLECLEUCEL
     Indication: ACUTE LYMPHOCYTIC LEUKAEMIA
     Dosage: DOSE - 1.6 X 10^8 CAR-T VIABLE T-CELLS
     Route: 042
     Dates: start: 20180102

REACTIONS (3)
  - Neurotoxicity [None]
  - Rapid eye movement sleep behaviour disorder [None]
  - Pyrexia [None]

NARRATIVE: CASE EVENT DATE: 20180106
